FAERS Safety Report 7166787-2 (Version None)
Quarter: 2010Q4

REPORT INFORMATION
  Report Type: 
  Country: None (occurrence: None)
  Receive Date: 20101216
  Receipt Date: 20101207
  Transmission Date: 20110411
  Serious: Yes (Other)
  Sender: FDA-Public Use
  Company Number: DE-ROCHE-747705

PATIENT
  Sex: Female
  Weight: 63 kg

DRUGS (3)
  1. BONIVA [Suspect]
     Indication: OSTEOPOROSIS
     Route: 048
     Dates: start: 20090601
  2. L-THYROXIN HENNING 100 [Concomitant]
     Indication: HYPOTHYROIDISM
     Route: 048
     Dates: start: 20060701
  3. VIGANTOLETTEN [Concomitant]
     Indication: OSTEOPOROSIS
     Route: 048
     Dates: start: 20060701

REACTIONS (1)
  - PARKINSON'S DISEASE [None]
